FAERS Safety Report 7328962-3 (Version None)
Quarter: 2011Q1

REPORT INFORMATION
  Report Type: 
  Country: None (occurrence: None)
  Receive Date: 20110218
  Receipt Date: 20110204
  Transmission Date: 20110831
  Serious: Yes (Hospitalization)
  Sender: FDA-Public Use
  Company Number: TCI2011A00517

PATIENT
  Age: 79 Year
  Sex: Female

DRUGS (2)
  1. ACTOS [Suspect]
     Indication: DIABETES MELLITUS
     Dosage: 30 MG (30 MG, 1 D) PER ORAL; 15 MG (15 MG, 1 D) PER ORAL
     Route: 048
     Dates: end: 20110109
  2. ACTOS [Suspect]
     Indication: DIABETES MELLITUS
     Dosage: 30 MG (30 MG, 1 D) PER ORAL; 15 MG (15 MG, 1 D) PER ORAL
     Route: 048
     Dates: start: 20101101

REACTIONS (3)
  - CHEST PAIN [None]
  - ARRHYTHMIA [None]
  - OEDEMA [None]
